FAERS Safety Report 6446775-1 (Version None)
Quarter: 2009Q4

REPORT INFORMATION
  Report Type: 
  Country: None (occurrence: None)
  Receive Date: 20091119
  Receipt Date: 20091109
  Transmission Date: 20100525
  Serious: Yes (Hospitalization, Other)
  Sender: FDA-Public Use
  Company Number: PHHY2009CA01106

PATIENT
  Sex: Male

DRUGS (6)
  1. SANDOSTATIN LAR [Suspect]
     Indication: ACROMEGALY
     Dosage: 30 MG, QMO
     Route: 030
     Dates: start: 19960830
  2. SOMAVENT [Concomitant]
  3. LITHIUM CARBONATE [Concomitant]
  4. LEVOTHYROXINE SODIUM [Concomitant]
  5. CORTEF [Concomitant]
     Dosage: UNK
  6. TESTOSTERONE [Concomitant]

REACTIONS (13)
  - DEEP VEIN THROMBOSIS [None]
  - HAEMOGLOBIN ABNORMAL [None]
  - HIP ARTHROPLASTY [None]
  - INFECTION [None]
  - KNEE ARTHROPLASTY [None]
  - MUSCLE RUPTURE [None]
  - NERVE COMPRESSION [None]
  - PAIN [None]
  - PAIN IN EXTREMITY [None]
  - PATELLA FRACTURE [None]
  - SCIATICA [None]
  - SEPSIS [None]
  - SPINAL DECOMPRESSION [None]
